FAERS Safety Report 21510906 (Version 1)
Quarter: 2022Q4

REPORT INFORMATION
  Report Type: Spontaneous
  Country: SA (occurrence: SA)
  Receive Date: 20221026
  Receipt Date: 20221026
  Transmission Date: 20230113
  Serious: Yes (Other)
  Sender: FDA-Public Use
  Company Number: SA-BEH-2022151062

PATIENT
  Sex: Female

DRUGS (3)
  1. FACTOR XIII CONCENTRATE (HUMAN) [Suspect]
     Active Substance: FACTOR XIII CONCENTRATE (HUMAN)
     Indication: Factor XIII deficiency
     Dosage: 15 INTERNATIONAL UNIT/KILOGRAM
     Route: 042
  2. FACTOR XIII CONCENTRATE (HUMAN) [Suspect]
     Active Substance: FACTOR XIII CONCENTRATE (HUMAN)
     Dosage: 30 INTERNATIONAL UNIT/KILOGRAM
     Route: 042
  3. FACTOR XIII CONCENTRATE (HUMAN) [Suspect]
     Active Substance: FACTOR XIII CONCENTRATE (HUMAN)
     Dosage: 40 INTERNATIONAL UNIT/KILOGRAM
     Route: 042

REACTIONS (2)
  - Drug ineffective [Unknown]
  - Neck injury [Unknown]
